FAERS Safety Report 5312938-1 (Version None)
Quarter: 2007Q2

REPORT INFORMATION
  Report Type: 
  Country: None (occurrence: None)
  Receive Date: 20070430
  Receipt Date: 20070419
  Transmission Date: 20071010
  Serious: Yes (Other)
  Sender: FDA-Public Use
  Company Number: GB-PFIZER INC-2007032075

PATIENT

DRUGS (1)
  1. DOXYCYCLINE [Suspect]

REACTIONS (1)
  - SLEEP TERROR [None]
